FAERS Safety Report 15200535 (Version 1)
Quarter: 2018Q3

REPORT INFORMATION
  Report Type: Report from Study
  Country: ES (occurrence: ES)
  Receive Date: 20180726
  Receipt Date: 20180726
  Transmission Date: 20181010
  Serious: Yes (Hospitalization)
  Sender: FDA-Public Use
  Company Number: ES-TEVA-2018-ES-929727

PATIENT
  Age: 81 Year
  Sex: Female

DRUGS (6)
  1. LOSARTAN (7157A) [Suspect]
     Active Substance: LOSARTAN
     Dosage: 50 MG DAY
     Route: 048
     Dates: start: 20170730, end: 20171212
  2. INSULINA NOVORAPPID [Concomitant]
     Indication: INSULIN-REQUIRING TYPE 2 DIABETES MELLITUS
     Dosage: 8 IU (INTERNATIONAL UNIT) DAILY; 2?2?4
     Route: 058
     Dates: start: 20170730
  3. CARDURAN 4MG COMPRIMIDOS,  28 COMPRIMIDOS [Concomitant]
     Dosage: 1?0?0.28 TABLETS
     Route: 048
     Dates: start: 20170730
  4. BISOPROLOL (2328A) [Concomitant]
     Active Substance: BISOPROLOL
     Dosage: 2.5 MG A DAY
     Route: 048
     Dates: start: 20170730
  5. ENALAPRIL (2142A) [Interacting]
     Active Substance: ENALAPRIL
     Dosage: 10MG EVERY 12 HOURS
     Route: 048
     Dates: start: 20170730
  6. INSULINA LEVEMIR [Concomitant]
     Indication: INSULIN-REQUIRING TYPE 2 DIABETES MELLITUS
     Dosage: 40 IU (INTERNATIONAL UNIT) DAILY; 10?0?30
     Route: 058
     Dates: start: 20170730

REACTIONS (3)
  - Electrocardiogram abnormal [Recovered/Resolved]
  - Hyperkalaemia [Recovered/Resolved]
  - Drug interaction [Unknown]

NARRATIVE: CASE EVENT DATE: 20171212
